FAERS Safety Report 10811323 (Version 1)
Quarter: 2015Q1

REPORT INFORMATION
  Report Type: Spontaneous
  Country: US (occurrence: None)
  Receive Date: 20150212
  Receipt Date: 20150212
  Transmission Date: 20150721
  Serious: No
  Sender: FDA-Public Use
  Company Number: None

PATIENT
  Age: 58 Year
  Sex: Male
  Weight: 83.92 kg

DRUGS (1)
  1. HYDROCODONE/ACETAMINOPHIN [Suspect]
     Active Substance: ACETAMINOPHEN\HYDROCODONE
     Indication: PAIN
     Dosage: 1 FOUR TIMES DAILY TAKEN BY MOUTH
     Route: 048
     Dates: start: 20150205, end: 20150210

REACTIONS (6)
  - Product substitution issue [None]
  - Somnolence [None]
  - Diarrhoea [None]
  - Drug ineffective [None]
  - Drug withdrawal syndrome [None]
  - Product quality issue [None]

NARRATIVE: CASE EVENT DATE: 20150205
